FAERS Safety Report 4442106-7 (Version None)
Quarter: 2004Q3

REPORT INFORMATION
  Report Type: 
  Country: None (occurrence: None)
  Receive Date: 20040903
  Receipt Date: 20040625
  Transmission Date: 20050211
  Serious: Yes (Hospitalization)
  Sender: FDA-Public Use
  Company Number: 2004UW13197

PATIENT
  Age: 80 Year
  Sex: Female
  Weight: 56.6996 kg

DRUGS (7)
  1. CRESTOR [Suspect]
     Dosage: 5 MG PO
     Route: 048
     Dates: start: 20030901
  2. VERAPAMIL [Concomitant]
  3. DIOVAN [Concomitant]
  4. ISOSORBIDE [Concomitant]
  5. ACIPHEX [Concomitant]
  6. PLAVIX [Concomitant]
  7. BACTRIM [Concomitant]

REACTIONS (1)
  - PAIN IN EXTREMITY [None]
